FAERS Safety Report 7771321-X (Version None)
Quarter: 2011Q3

REPORT INFORMATION
  Report Type: 
  Country: None (occurrence: None)
  Receive Date: 20110922
  Receipt Date: 20110914
  Transmission Date: 20111222
  Serious: Yes (Hospitalization)
  Sender: FDA-Public Use
  Company Number: US-MERCK-1107USA00202

PATIENT
  Age: 61 Year
  Sex: Female

DRUGS (5)
  1. FOSAMAX [Suspect]
     Indication: OSTEOPENIA
     Route: 048
     Dates: start: 20010101, end: 20080601
  2. ALENDRONATE SODIUM [Suspect]
     Route: 048
     Dates: start: 20081209, end: 20090919
  3. FOSAMAX PLUS D [Suspect]
     Indication: OSTEOPENIA
     Route: 048
     Dates: start: 20080801, end: 20090701
  4. VITAMINS (UNSPECIFIED) [Concomitant]
     Route: 065
     Dates: start: 19910101
  5. PREMPRO [Concomitant]
     Indication: MENOPAUSE
     Route: 065
     Dates: start: 19970101, end: 20080901

REACTIONS (11)
  - FEMUR FRACTURE [None]
  - BONE DISORDER [None]
  - BREAST CANCER IN SITU [None]
  - PAIN [None]
  - FALL [None]
  - LUNG DISORDER [None]
  - GASTROINTESTINAL DISORDER [None]
  - ARTHRALGIA [None]
  - GASTRITIS [None]
  - BURSITIS [None]
  - GASTROOESOPHAGEAL REFLUX DISEASE [None]
